FAERS Safety Report 15937705 (Version 1)
Quarter: 2019Q1

REPORT INFORMATION
  Report Type: Spontaneous
  Country: US (occurrence: US)
  Receive Date: 20190208
  Receipt Date: 20190208
  Transmission Date: 20190417
  Serious: No
  Sender: FDA-Public Use
  Company Number: None

PATIENT

DRUGS (2)
  1. AMITIZA [Suspect]
     Active Substance: LUBIPROSTONE
  2. LACTULOSE. [Suspect]
     Active Substance: LACTULOSE

REACTIONS (1)
  - Treatment failure [None]
